FAERS Safety Report 23533799 (Version 1)
Quarter: 2024Q1

REPORT INFORMATION
  Report Type: Spontaneous
  Country: FR (occurrence: FR)
  Receive Date: 20240216
  Receipt Date: 20240216
  Transmission Date: 20240410
  Serious: Yes (Other)
  Sender: FDA-Public Use
  Company Number: None

PATIENT
  Age: 17 Year
  Sex: Male

DRUGS (1)
  1. DULOXETINE [Suspect]
     Active Substance: DULOXETINE
     Indication: Thymus disorder
     Dosage: 60 MG IN THE MORNING
     Route: 048
     Dates: start: 20231120, end: 20231129

REACTIONS (1)
  - Central hypothyroidism [Recovered/Resolved]

NARRATIVE: CASE EVENT DATE: 20231127
